FAERS Safety Report 11783348 (Version 1)
Quarter: 2015Q4

REPORT INFORMATION
  Report Type: Spontaneous
  Country: ES (occurrence: ES)
  Receive Date: 20151127
  Receipt Date: 20151127
  Transmission Date: 20160305
  Serious: Yes (Hospitalization)
  Sender: FDA-Public Use
  Company Number: PHHY2015ES153405

PATIENT
  Age: 72 Year
  Sex: Male

DRUGS (2)
  1. TEGRETOL [Suspect]
     Active Substance: CARBAMAZEPINE
     Indication: EPILEPSY
     Dosage: 400 MG, BID
     Route: 065
     Dates: start: 200903, end: 200903
  2. TEGRETOL [Suspect]
     Active Substance: CARBAMAZEPINE
     Dosage: DOSE DOUBLED
     Route: 065
     Dates: start: 200903, end: 200903

REACTIONS (4)
  - Accidental overdose [Recovered/Resolved]
  - Confusional state [Recovered/Resolved]
  - Asthenia [Recovered/Resolved]
  - Hyponatraemia [Recovering/Resolving]

NARRATIVE: CASE EVENT DATE: 200903
